FAERS Safety Report 6960950-9 (Version None)
Quarter: 2010Q3

REPORT INFORMATION
  Report Type: 
  Country: None (occurrence: None)
  Receive Date: 20100901
  Receipt Date: 20100819
  Transmission Date: 20110219
  Serious: Yes (Other)
  Sender: FDA-Public Use
  Company Number: US-BAYER-201037084GPV

PATIENT

DRUGS (3)
  1. ALEMTUZUMAB [Suspect]
     Indication: HAEMATOLOGICAL MALIGNANCY
     Dosage: DAYS 1, 3, 5, WEEKS 1-2
     Route: 058
  2. ALEMTUZUMAB [Suspect]
     Dosage: DAY 1
     Route: 058
  3. RITUXIMAB [Suspect]
     Indication: HAEMATOLOGICAL MALIGNANCY
     Dosage: 375 MG/M2 1 DAY OF WEEK 1-4

REACTIONS (1)
  - PULMONARY EMBOLISM [None]
